FAERS Safety Report 12171871 (Version 1)
Quarter: 2016Q1

REPORT INFORMATION
  Report Type: Spontaneous
  Country: US (occurrence: US)
  Receive Date: 20160311
  Receipt Date: 20160311
  Transmission Date: 20160526
  Serious: Yes (Other)
  Sender: FDA-Public Use
  Company Number: US-R-PHARM US LLC-2016RPM00014

PATIENT
  Sex: Female

DRUGS (8)
  1. ADRIAMYCIN [Suspect]
     Active Substance: DOXORUBICIN HYDROCHLORIDE
  2. CAPECITABINE. [Suspect]
     Active Substance: CAPECITABINE
  3. AFINITOR [Suspect]
     Active Substance: EVEROLIMUS
  4. DOCETAXEL. [Suspect]
     Active Substance: DOCETAXEL
  5. RADIOTHERAPY [Suspect]
     Active Substance: RADIATION THERAPY
  6. FULVESTRANT [Suspect]
     Active Substance: FULVESTRANT
  7. IXABEPILONE [Suspect]
     Active Substance: IXABEPILONE
     Indication: BREAST CANCER METASTATIC
  8. TAMOXIFEN [Suspect]
     Active Substance: TAMOXIFEN

REACTIONS (1)
  - Breast cancer metastatic [Unknown]
